FAERS Safety Report 8710584 (Version 2)
Quarter: 2013Q4

REPORT INFORMATION
  Report Type: Spontaneous
  Country: US (occurrence: US)
  Receive Date: 20120807
  Receipt Date: 20131101
  Transmission Date: 20140711
  Serious: No
  Sender: FDA-Public Use
  Company Number: US-009507513-1207USA005547

PATIENT
  Sex: Male

DRUGS (3)
  1. VICTRELIS [Suspect]
     Dosage: 200 MG, UNK
  2. REBETOL [Suspect]
     Dosage: 200 MG, UNK
  3. PEGASYS [Suspect]
     Indication: HEPATITIS C
     Dosage: 180 MICROGRAM, QM
     Route: 058
     Dates: start: 20120523

REACTIONS (9)
  - Vomiting [Unknown]
  - Rash [Unknown]
  - Alopecia [Unknown]
  - Arthralgia [Unknown]
  - Fatigue [Unknown]
  - Muscle twitching [Unknown]
  - Chromaturia [Unknown]
  - Weight decreased [Unknown]
  - Dysgeusia [Unknown]
